FAERS Safety Report 7290824-8 (Version None)
Quarter: 2011Q1

REPORT INFORMATION
  Report Type: 
  Country: None (occurrence: None)
  Receive Date: 20110202
  Receipt Date: 20110119
  Transmission Date: 20110831
  Serious: Yes (Life-Threatening)
  Sender: FDA-Public Use
  Company Number: 2011CP000015

PATIENT
  Age: 39 Year
  Sex: Male

DRUGS (8)
  1. SUFENTANIL (SUFENTANIL) [Suspect]
     Indication: INDUCTION OF ANAESTHESIA
     Dosage: 10 MCG;IV
     Route: 042
     Dates: start: 20100511
  2. PERFALGAN (PARACETAMOL) [Suspect]
     Indication: ANALGESIC THERAPY
     Dosage: 1 GM;IV
     Route: 042
     Dates: start: 20100511
  3. PROPOFOL [Suspect]
     Indication: INDUCTION OF ANAESTHESIA
     Dosage: 200 MG;IV
     Route: 042
     Dates: start: 20100511
  4. ACUPAN [Suspect]
     Dosage: IV
     Route: 042
     Dates: start: 20100511
  5. MIDAZOLAM HCL [Suspect]
     Indication: INDUCTION OF ANAESTHESIA
     Dosage: 1 MG;IV
     Route: 042
     Dates: start: 20100511
  6. AMOXICILLIN [Suspect]
     Indication: ANTIBIOTIC PROPHYLAXIS
     Dosage: 1.2 GM;IV
     Route: 042
     Dates: start: 20100511
  7. KETAMINE HCL (KETAMINE HYDROCHOLORIDE) [Suspect]
     Indication: INDUCTION OF ANAESTHESIA
     Dosage: IV
     Route: 042
     Dates: start: 20100511
  8. SUXAMETHONIUM CHLORIDE (SUXAMETHANIUM CHLORIDE) [Suspect]
     Indication: ANAESTHESIA
     Dosage: 80 MG;IV
     Route: 042
     Dates: start: 20100511

REACTIONS (2)
  - ANAPHYLACTIC SHOCK [None]
  - GENERALISED ERYTHEMA [None]
